FAERS Safety Report 5571390-1 (Version None)
Quarter: 2007Q4

REPORT INFORMATION
  Report Type: 
  Country: None (occurrence: None)
  Receive Date: 20071221
  Receipt Date: 20070928
  Transmission Date: 20080405
  Serious: No
  Sender: FDA-Public Use
  Company Number: A0685026A

PATIENT
  Age: 39 Year
  Sex: Male

DRUGS (9)
  1. FLONASE [Suspect]
     Dosage: 2SPR TWICE PER DAY
     Route: 045
  2. FLUOCINONIDE [Concomitant]
  3. GEODON [Concomitant]
  4. LEVOTHYROXINE SODIUM [Concomitant]
  5. LITHIUM CARBONATE [Concomitant]
  6. METFORMIN HCL [Concomitant]
  7. SEROQUEL [Concomitant]
  8. TRICOR [Concomitant]
  9. ZETIA [Concomitant]

REACTIONS (1)
  - EPISTAXIS [None]
